FAERS Safety Report 25171677 (Version 2)
Quarter: 2025Q2

REPORT INFORMATION
  Report Type: Spontaneous
  Country: JP (occurrence: JP)
  Receive Date: 20250408
  Receipt Date: 20250423
  Transmission Date: 20250717
  Serious: Yes (Hospitalization)
  Sender: JOHNSON AND JOHNSON
  Company Number: JP-JNJFOC-20250275034

PATIENT
  Age: 26 Year
  Sex: Female

DRUGS (10)
  1. INVEGA [Suspect]
     Active Substance: PALIPERIDONE
     Indication: Schizophrenia
     Dosage: THERAPY START DATE : 05-FEB-2025
     Route: 048
     Dates: end: 20250216
  2. INVEGA [Suspect]
     Active Substance: PALIPERIDONE
     Dosage: THERAPY START DATE : 17-FEB-2025
     Route: 048
     Dates: end: 20250316
  3. PALIPERIDONE PALMITATE [Concomitant]
     Active Substance: PALIPERIDONE PALMITATE
     Indication: Schizophrenia
     Route: 030
     Dates: start: 20250317, end: 20250317
  4. PALIPERIDONE PALMITATE [Concomitant]
     Active Substance: PALIPERIDONE PALMITATE
     Route: 030
     Dates: start: 20250325, end: 20250325
  5. BIPERIDEN HYDROCHLORIDE [Concomitant]
     Active Substance: BIPERIDEN HYDROCHLORIDE
     Indication: Product used for unknown indication
     Dosage: DOSE UNKNOWN, IN THE MORNING AND EVENING
     Route: 048
  6. REXULTI [Concomitant]
     Active Substance: BREXPIPRAZOLE
     Indication: Schizophrenia
     Route: 065
     Dates: start: 20250107, end: 202502
  7. REXULTI [Concomitant]
     Active Substance: BREXPIPRAZOLE
     Route: 065
     Dates: start: 202502, end: 20250225
  8. LORAZEPAM [Concomitant]
     Active Substance: LORAZEPAM
     Indication: Product used for unknown indication
     Route: 065
     Dates: start: 202502, end: 202502
  9. DAYVIGO [Concomitant]
     Active Substance: LEMBOREXANT
     Indication: Product used for unknown indication
     Route: 065
     Dates: start: 202502
  10. BLONANSERIN [Concomitant]
     Active Substance: BLONANSERIN
     Indication: Product used for unknown indication
     Route: 062
     Dates: end: 20250401

REACTIONS (11)
  - Hospitalisation [Unknown]
  - Physical deconditioning [Unknown]
  - Tremor [Unknown]
  - Akathisia [Unknown]
  - Parkinsonism [Unknown]
  - Dizziness [Unknown]
  - Face oedema [Unknown]
  - Pallor [Unknown]
  - Headache [Unknown]
  - Stereotypy [Unknown]
  - Treatment noncompliance [Unknown]

NARRATIVE: CASE EVENT DATE: 20240101
